FAERS Safety Report 6162776-5 (Version None)
Quarter: 2009Q2

REPORT INFORMATION
  Report Type: 
  Country: None (occurrence: None)
  Receive Date: 20090421
  Receipt Date: 20080702
  Transmission Date: 20091009
  Serious: No
  Sender: FDA-Public Use
  Company Number: US-ASTRAZENECA-2008UW13263

PATIENT
  Age: 58 Year
  Sex: Female
  Weight: 54.4 kg

DRUGS (3)
  1. TOPROL-XL [Suspect]
     Indication: HYPERTENSION
     Route: 048
  2. PANTAZA [Concomitant]
  3. PREDNISONE [Concomitant]

REACTIONS (2)
  - AMNESIA [None]
  - TINNITUS [None]
